FAERS Safety Report 11794673 (Version 2)
Quarter: 2015Q4

REPORT INFORMATION
  Report Type: Spontaneous
  Country: US (occurrence: US)
  Receive Date: 20151202
  Receipt Date: 20151228
  Transmission Date: 20160305
  Serious: Yes (Hospitalization)
  Sender: FDA-Public Use
  Company Number: US-PFIZER INC-2015398753

PATIENT
  Age: 83 Year
  Sex: Male
  Weight: 73 kg

DRUGS (1)
  1. SUTENT [Suspect]
     Active Substance: SUNITINIB MALATE
     Indication: RENAL CANCER
     Dosage: 50 MG, DAILY FOR 28 DAYS ON AND OFF FOR 2 WEEKS
     Route: 048
     Dates: start: 20151008

REACTIONS (10)
  - Abdominal pain [Unknown]
  - Nausea [Recovered/Resolved]
  - Renal cancer [Unknown]
  - Weight decreased [Unknown]
  - Vomiting [Recovered/Resolved]
  - Pollakiuria [Unknown]
  - Disease progression [Unknown]
  - Decreased appetite [Unknown]
  - Musculoskeletal chest pain [Recovered/Resolved]
  - Diarrhoea [Recovered/Resolved]
